FAERS Safety Report 7608481-7 (Version None)
Quarter: 2011Q3

REPORT INFORMATION
  Report Type: 
  Country: None (occurrence: None)
  Receive Date: 20110714
  Receipt Date: 20110706
  Transmission Date: 20111222
  Serious: Yes (Other)
  Sender: FDA-Public Use
  Company Number: US-PFIZER INC-2011133748

PATIENT
  Sex: Male

DRUGS (1)
  1. RAPAMUNE [Suspect]
     Indication: RENAL DISORDER
     Dosage: 3 MG DAILY
     Dates: start: 20100603, end: 20110601

REACTIONS (2)
  - DECREASED APPETITE [None]
  - ABDOMINAL PAIN UPPER [None]
